FAERS Safety Report 10670452 (Version 1)
Quarter: 2014Q4

REPORT INFORMATION
  Report Type: Spontaneous
  Country: US (occurrence: US)
  Receive Date: 20141223
  Receipt Date: 20141223
  Transmission Date: 20150529
  Serious: Yes (Other)
  Sender: FDA-Public Use
  Company Number: US-ELI_LILLY_AND_COMPANY-US201412007669

PATIENT
  Age: 68 Year
  Sex: Female

DRUGS (2)
  1. LANTUS [Concomitant]
     Active Substance: INSULIN GLARGINE
  2. HUMALOG [Suspect]
     Active Substance: INSULIN LISPRO
     Indication: TYPE 2 DIABETES MELLITUS
     Dosage: 9 U, QID

REACTIONS (6)
  - Visual impairment [Unknown]
  - Parkinson^s disease [Not Recovered/Not Resolved]
  - Hypertension [Unknown]
  - Memory impairment [Unknown]
  - Nervousness [Unknown]
  - Injury [Unknown]

NARRATIVE: CASE EVENT DATE: 201409
